FAERS Safety Report 22334154 (Version 1)
Quarter: 2023Q2

REPORT INFORMATION
  Report Type: Report from Study
  Country: US (occurrence: US)
  Receive Date: 20230517
  Receipt Date: 20230517
  Transmission Date: 20230722
  Serious: No
  Sender: FDA-Public Use
  Company Number: US-PFIZER INC-US-GBT-018039

PATIENT
  Age: 7 Year
  Sex: Female
  Weight: 20.862 kg

DRUGS (4)
  1. OXBRYTA [Suspect]
     Active Substance: VOXELOTOR
     Indication: Sickle cell anaemia
     Dosage: 900 MG
     Route: 048
     Dates: start: 202208
  2. OXBRYTA [Suspect]
     Active Substance: VOXELOTOR
     Dosage: 75 MG, 1X/DAY (THREE 15 MG TABLETS ONCE DAILY BY MOUTH)
     Route: 048
  3. HYDROXYUREA [Concomitant]
     Active Substance: HYDROXYUREA
     Dosage: UNK
  4. FOLATE SODIUM [Concomitant]
     Active Substance: FOLATE SODIUM
     Dosage: UNK

REACTIONS (1)
  - Abdominal pain [Recovered/Resolved]

NARRATIVE: CASE EVENT DATE: 20221103
